FAERS Safety Report 9345022 (Version 1)
Quarter: 2013Q2

REPORT INFORMATION
  Report Type: Spontaneous
  Country: US (occurrence: US)
  Receive Date: 20130612
  Receipt Date: 20130612
  Transmission Date: 20140414
  Serious: Yes (Other)
  Sender: FDA-Public Use
  Company Number: US-ABBOTT-13P-163-1102166-00

PATIENT
  Sex: Female

DRUGS (1)
  1. REMIFENTANIL [Suspect]
     Indication: MATERNAL EXPOSURE TIMING UNSPECIFIED

REACTIONS (3)
  - Bradycardia [Unknown]
  - Foetal heart rate deceleration [Unknown]
  - Foetal exposure during pregnancy [Unknown]
